FAERS Safety Report 18840204 (Version 8)
Quarter: 2022Q1

REPORT INFORMATION
  Report Type: Report from Study
  Country: JP (occurrence: JP)
  Receive Date: 20210204
  Receipt Date: 20220314
  Transmission Date: 20220423
  Serious: Yes (Death, Other)
  Sender: FDA-Public Use
  Company Number: JP-KYOWAKIRIN-2020AKK011003

PATIENT
  Age: 46 Year
  Sex: Female

DRUGS (83)
  1. ROMIPLOSTIM [Suspect]
     Active Substance: ROMIPLOSTIM
     Indication: Aplastic anaemia
     Dosage: 750 MICROGRAM, QWK
     Route: 058
     Dates: start: 20191105, end: 20200608
  2. ROMIPLOSTIM [Suspect]
     Active Substance: ROMIPLOSTIM
     Dosage: 500 MICROGRAM, QWK
     Route: 058
     Dates: start: 20200615
  3. FILGRASTIM [Concomitant]
     Active Substance: FILGRASTIM
     Indication: Aplastic anaemia
     Dosage: 600 UG, 2X/WEEK
     Route: 065
     Dates: start: 20201105, end: 20210108
  4. NEORAL [Concomitant]
     Active Substance: CYCLOSPORINE
     Indication: Aplastic anaemia
     Dosage: 100 MG, BID  (AFTER BREAKFAST AND DINNER)
     Route: 048
     Dates: end: 20201122
  5. NEORAL [Concomitant]
     Active Substance: CYCLOSPORINE
     Dosage: 100 MG, BID (AFTER BREAKFAST AND DINNER)
     Route: 048
     Dates: start: 20201124, end: 20201206
  6. NEORAL [Concomitant]
     Active Substance: CYCLOSPORINE
     Dosage: 200 MG, BID (AFTER BREAKFAST AND DINNER)
     Route: 048
     Dates: start: 20201207, end: 20201207
  7. NEORAL [Concomitant]
     Active Substance: CYCLOSPORINE
     Dosage: 100 MG, BID  (AFTER BREAKFAST AND DINNER)
     Route: 048
     Dates: start: 20201208, end: 20210110
  8. PREDNISOLONE [Concomitant]
     Active Substance: PREDNISOLONE
     Indication: Aplastic anaemia
     Dosage: 15 MG, QD, AFTER BREAKFAST
     Route: 048
     Dates: end: 20201122
  9. PREDNISOLONE [Concomitant]
     Active Substance: PREDNISOLONE
     Dosage: 15 MG, QD, AFTER BREAKFAST
     Route: 048
     Dates: start: 20201124, end: 20201206
  10. PREDNISOLONE [Concomitant]
     Active Substance: PREDNISOLONE
     Dosage: 15 MG, QD, AFTER BREAKFAST
     Route: 048
     Dates: start: 20201207, end: 20201207
  11. PREDNISOLONE [Concomitant]
     Active Substance: PREDNISOLONE
     Dosage: 15 MG, QD, AFTER BREAKFAST
     Route: 048
     Dates: start: 20201208, end: 20210110
  12. AMITIZA [Concomitant]
     Active Substance: LUBIPROSTONE
     Indication: Constipation
     Dosage: 24 UG, BID (AFTER BREAKFAST AND DINNER)
     Route: 048
     Dates: end: 20201122
  13. AMITIZA [Concomitant]
     Active Substance: LUBIPROSTONE
     Dosage: 24 UG, BID (AFTER BREAKFAST AND DINNER)
     Route: 048
     Dates: start: 20201124, end: 20201206
  14. AMITIZA [Concomitant]
     Active Substance: LUBIPROSTONE
     Dosage: 48 UG, BID (AFTER BREAKFAST AND DINNER)
     Route: 048
     Dates: start: 20201207, end: 20201207
  15. AMITIZA [Concomitant]
     Active Substance: LUBIPROSTONE
     Dosage: 24 UG, BID (AFTER BREAKFAST AND DINNER)
     Route: 048
     Dates: start: 20201208, end: 20210110
  16. HERBALS [Concomitant]
     Active Substance: HERBALS
     Indication: Constipation
     Dosage: 2.5 G, TID, (BEFORE MEALS)
     Route: 048
     Dates: end: 20201122
  17. HERBALS [Concomitant]
     Active Substance: HERBALS
     Dosage: 2.5 G, TID (BEFORE MEALS)
     Route: 048
     Dates: start: 20201124, end: 20201206
  18. HERBALS [Concomitant]
     Active Substance: HERBALS
     Dosage: 2.5 G, TID (BEFORE MEALS)
     Route: 048
     Dates: start: 20201207, end: 20201207
  19. HERBALS [Concomitant]
     Active Substance: HERBALS
     Dosage: 2.5 G, TID (BEFORE MEALS)
     Route: 048
     Dates: start: 20201208, end: 20210110
  20. HERBAL NOS [Concomitant]
     Active Substance: HERBALS
     Indication: Constipation
     Dosage: 2.5 MG, TID (BEFORE MEALS)
     Route: 048
     Dates: start: 20201208, end: 20210110
  21. HERBAL NOS [Concomitant]
     Active Substance: HERBALS
     Dosage: 2.5 MG, TID (BEFORE MEALS)
     Route: 048
     Dates: end: 20201122
  22. HERBAL NOS [Concomitant]
     Active Substance: HERBALS
     Dosage: 2.5 MG, TID (BEFORE MEALS)
     Route: 048
     Dates: start: 20201124, end: 20201206
  23. HERBAL NOS [Concomitant]
     Active Substance: HERBALS
     Dosage: 2.5 MG, TID (BEFORE MEALS)
     Route: 048
     Dates: start: 20201207, end: 20201207
  24. MIYA-BM [Concomitant]
     Active Substance: CLOSTRIDIUM BUTYRICUM SPORES STRAIN M-55
     Indication: Constipation
     Dosage: 2 G, TID (AFTER MEALS)
     Route: 048
     Dates: end: 20201122
  25. MIYA-BM [Concomitant]
     Active Substance: CLOSTRIDIUM BUTYRICUM SPORES STRAIN M-55
     Dosage: 2 G, TID (AFTER MEALS)
     Route: 048
     Dates: start: 20201124, end: 20201206
  26. MIYA-BM [Concomitant]
     Active Substance: CLOSTRIDIUM BUTYRICUM SPORES STRAIN M-55
     Dosage: 2 G, TID (AFTER MEALS)
     Route: 048
     Dates: start: 20201207, end: 20201207
  27. MIYA-BM [Concomitant]
     Active Substance: CLOSTRIDIUM BUTYRICUM SPORES STRAIN M-55
     Dosage: 2 G, TID (AFTER MEALS)
     Route: 048
     Dates: start: 20201208, end: 20210110
  28. FEBUXOSTAT [Concomitant]
     Active Substance: FEBUXOSTAT
     Indication: Hyperuricaemia
     Dosage: 10 MG, QD
     Route: 048
     Dates: end: 20201122
  29. FEBUXOSTAT [Concomitant]
     Active Substance: FEBUXOSTAT
     Dosage: 10 MG, QD ,AFTER BREAKFAST
     Route: 048
     Dates: start: 20201124, end: 20201206
  30. FEBUXOSTAT [Concomitant]
     Active Substance: FEBUXOSTAT
     Dosage: 20 MG, QD, AFTER BREAKFAST
     Route: 048
     Dates: start: 20201207, end: 20201207
  31. FEBUXOSTAT [Concomitant]
     Active Substance: FEBUXOSTAT
     Dosage: 10 MG, QD, AFTER BREAKFAST
     Route: 048
     Dates: start: 20201208, end: 20210110
  32. FEBUXOSTAT [Concomitant]
     Active Substance: FEBUXOSTAT
     Dosage: 130 MILLIGRAM
  33. FEBUXOSTAT [Concomitant]
     Active Substance: FEBUXOSTAT
     Dosage: UNK
  34. NEXIUM [Concomitant]
     Active Substance: ESOMEPRAZOLE MAGNESIUM
     Indication: Product used for unknown indication
     Dosage: 20 MG, QD, AFTER BREAKFAST
     Route: 048
     Dates: end: 20201122
  35. NEXIUM [Concomitant]
     Active Substance: ESOMEPRAZOLE MAGNESIUM
     Dosage: 20 MG, QD, AFTER BREAKFAST
     Route: 048
     Dates: start: 20201124, end: 20201206
  36. NEXIUM [Concomitant]
     Active Substance: ESOMEPRAZOLE MAGNESIUM
     Dosage: 20 MG, QD, AFTER BREAKFAST
     Route: 048
     Dates: start: 20201207, end: 20201207
  37. NEXIUM [Concomitant]
     Active Substance: ESOMEPRAZOLE MAGNESIUM
     Dosage: 20 MG, QD, AFTER BREAKFAST
     Route: 048
     Dates: start: 20201208, end: 20210110
  38. REBAMIPIDE [Concomitant]
     Active Substance: REBAMIPIDE
     Indication: Product used for unknown indication
     Dosage: 100 MG, TID (AFTER MEALS)
     Route: 048
     Dates: end: 20201122
  39. REBAMIPIDE [Concomitant]
     Active Substance: REBAMIPIDE
     Dosage: 100 MG, TID (AFTER MEALS)
     Route: 048
     Dates: start: 20201124, end: 20201206
  40. REBAMIPIDE [Concomitant]
     Active Substance: REBAMIPIDE
     Dosage: 100 MG, TID (AFTER MEALS)
     Route: 048
     Dates: start: 20201207, end: 20201207
  41. REBAMIPIDE [Concomitant]
     Active Substance: REBAMIPIDE
     Dosage: 100 MG, TID (AFTER MEALS)
     Route: 048
     Dates: start: 20201208, end: 20210110
  42. FUNGIZONE [Concomitant]
     Active Substance: AMPHOTERICIN B
     Indication: Product used for unknown indication
     Dosage: 2 ML (3 TIMES A DAY)
     Route: 048
     Dates: start: 20201109, end: 20201120
  43. FUNGIZONE [Concomitant]
     Active Substance: AMPHOTERICIN B
     Dosage: 2 ML (3 TIMES A DAY)
     Route: 048
     Dates: start: 20201207, end: 20201218
  44. FUNGIZONE [Concomitant]
     Active Substance: AMPHOTERICIN B
     Dosage: 2 ML (3 TIMES A DAY)
     Route: 048
     Dates: start: 20201221, end: 20210101
  45. DIFLUCORTOLONE VALERATE\LIDOCAINE [Concomitant]
     Active Substance: DIFLUCORTOLONE VALERATE\LIDOCAINE
     Indication: Haemorrhoids
     Dosage: 2 GRAM, BID
     Route: 061
     Dates: start: 20201109, end: 20201122
  46. ZEBIAX [OZENOXACIN] [Concomitant]
     Indication: Acne
     Dosage: 100 G, QD
     Route: 061
     Dates: start: 20201109, end: 20201109
  47. ZEBIAX [OZENOXACIN] [Concomitant]
     Dosage: 100 G, QD
     Route: 061
     Dates: start: 20201116, end: 20201116
  48. ZEBIAX [OZENOXACIN] [Concomitant]
     Dosage: 100 G, QD
     Route: 061
     Dates: start: 20201207, end: 20201207
  49. ZEBIAX [OZENOXACIN] [Concomitant]
     Dosage: 100 G, QD
     Route: 061
     Dates: start: 20201228, end: 20201228
  50. CEFACLOR [Concomitant]
     Active Substance: CEFACLOR
     Indication: Acne
     Dosage: 250 MG, TID (AFTER MEALS)
     Route: 048
     Dates: start: 20201109, end: 20201115
  51. CEFACLOR [Concomitant]
     Active Substance: CEFACLOR
     Dosage: 250 MG, TID (AFTER MEALS)
     Route: 048
     Dates: start: 20201116, end: 20201118
  52. CEFACLOR [Concomitant]
     Active Substance: CEFACLOR
     Dosage: 250 MG, TID (AFTER MEALS)
     Route: 048
     Dates: start: 20201119, end: 20201125
  53. CEFACLOR [Concomitant]
     Active Substance: CEFACLOR
     Dosage: 250 MG, TID (AFTER MEALS)
     Route: 048
     Dates: start: 20201207, end: 20201223
  54. CEFACLOR [Concomitant]
     Active Substance: CEFACLOR
     Dosage: 250 MG, TID (AFTER MEALS)
     Route: 048
     Dates: start: 20201228, end: 20210106
  55. DIFFERIN [Concomitant]
     Active Substance: ADAPALENE
     Indication: Product used for unknown indication
     Dosage: 30 GRAM, QD
     Route: 061
     Dates: start: 20201109, end: 20201109
  56. SAIREITO [ALISMA ORIENTALE TUBER;ATRACTYLODES LANCEA RHIZOME;BUPLEURUM [Concomitant]
     Indication: Product used for unknown indication
     Dosage: 9 G, TID (BEFORE MEALS)
     Route: 048
     Dates: start: 20210106, end: 20210110
  57. SAIREITO [ALISMA ORIENTALE TUBER;ATRACTYLODES LANCEA RHIZOME;BUPLEURUM [Concomitant]
     Dosage: 9 G, TID (BEFORE MEALS)
     Route: 048
     Dates: start: 20201109, end: 20201206
  58. SAIREITO [ALISMA ORIENTALE TUBER;ATRACTYLODES LANCEA RHIZOME;BUPLEURUM [Concomitant]
     Dosage: 18 G, TID (BEFORE MEALS)
     Route: 048
     Dates: start: 20201207, end: 20201208
  59. SAIREITO [ALISMA ORIENTALE TUBER;ATRACTYLODES LANCEA RHIZOME;BUPLEURUM [Concomitant]
     Dosage: 9 G, TID (BEFORE MEALS)
     Route: 048
     Dates: start: 20201209, end: 20201227
  60. SAIREITO [ALISMA ORIENTALE TUBER;ATRACTYLODES LANCEA RHIZOME;BUPLEURUM [Concomitant]
     Dosage: 18 G, TID (BEFORE MEALS)
     Route: 048
     Dates: start: 20201228, end: 20210105
  61. LOCOID [Concomitant]
     Active Substance: HYDROCORTISONE BUTYRATE
     Indication: Product used for unknown indication
     Dosage: 5 G, 1 OR 2 TIMES A DAY
     Route: 061
     Dates: start: 20201106, end: 20201106
  62. CALONAL [Concomitant]
     Active Substance: ACETAMINOPHEN
     Indication: Product used for unknown indication
     Dosage: 400 MG, TID (AFTER MEALS)
     Route: 048
     Dates: start: 20201124, end: 20201206
  63. CALONAL [Concomitant]
     Active Substance: ACETAMINOPHEN
     Dosage: 400 MG, TID (AFTER MEALS)
     Route: 048
     Dates: start: 20201207, end: 20201207
  64. CALONAL [Concomitant]
     Active Substance: ACETAMINOPHEN
     Dosage: 400 MG, TID (AFTER MEALS)
     Route: 048
     Dates: start: 20201208, end: 20210103
  65. ALLOID G [Concomitant]
     Active Substance: SODIUM ALGINATE
     Indication: Product used for unknown indication
     Dosage: 20 ML, TID (BETWEEN EACH MEAL)
     Route: 048
     Dates: start: 20201208, end: 20210110
  66. ALLOID G [Concomitant]
     Active Substance: SODIUM ALGINATE
     Dosage: 20 ML, TID (BETWEEN EACH MEAL)
     Route: 048
     Dates: start: 20201127, end: 20201202
  67. ALLOID G [Concomitant]
     Active Substance: SODIUM ALGINATE
     Dosage: 40 ML, TID (BETWEEN EACH MEAL)
     Route: 048
     Dates: start: 20201203, end: 20201203
  68. ALLOID G [Concomitant]
     Active Substance: SODIUM ALGINATE
     Dosage: 20 ML, TID (BETWEEN EACH MEAL)
     Route: 048
     Dates: start: 20201204, end: 20201206
  69. ALLOID G [Concomitant]
     Active Substance: SODIUM ALGINATE
     Dosage: 40 ML, TID (BETWEEN EACH MEAL)
     Route: 048
     Dates: start: 20201207, end: 20201207
  70. ISODINE [Concomitant]
     Active Substance: POVIDONE-IODINE
     Indication: Product used for unknown indication
     Dosage: 90 G, 1 OR 2 TIMES A DAY
     Route: 061
     Dates: start: 20201207, end: 20201207
  71. ISODINE [Concomitant]
     Active Substance: POVIDONE-IODINE
     Dosage: 90 G  ,1 OR 2 TIMES A DAY
     Route: 061
     Dates: start: 20201228, end: 20201228
  72. ALESION LX [Concomitant]
     Indication: Product used for unknown indication
     Dosage: 7.5 ML, BID
     Route: 047
     Dates: start: 20210104, end: 20210104
  73. SODIUM CHLORIDE [Concomitant]
     Active Substance: SODIUM CHLORIDE
     Indication: Product used for unknown indication
     Dosage: 100 ML, 2X/WEEK
     Route: 041
     Dates: start: 20201105, end: 20210108
  74. SODIUM CHLORIDE [Concomitant]
     Active Substance: SODIUM CHLORIDE
     Dosage: 50 ML
     Route: 041
     Dates: start: 20210109, end: 20210109
  75. SODIUM CHLORIDE [Concomitant]
     Active Substance: SODIUM CHLORIDE
     Dosage: 20 ML
     Route: 041
     Dates: start: 20210110, end: 20210110
  76. POLARAMINE [Concomitant]
     Active Substance: DEXCHLORPHENIRAMINE MALEATE
     Indication: Product used for unknown indication
     Dosage: 1 MILLILITER, Q2WK
     Route: 041
     Dates: start: 20201105, end: 20210108
  77. DISTILLED WATER [WATER FOR INJECTION] [Concomitant]
     Indication: Product used for unknown indication
     Dosage: 1 MILLILITER, QWK
     Route: 058
     Dates: start: 20201109, end: 20210104
  78. DEXTROSE\SODIUM CHLORIDE\SODIUM LACTATE [Concomitant]
     Active Substance: DEXTROSE\SODIUM CHLORIDE\SODIUM LACTATE
     Indication: Product used for unknown indication
     Dosage: 500 MILLILITER
     Route: 041
     Dates: start: 20210109, end: 20210109
  79. SOLDEM 3A [Concomitant]
     Active Substance: CARBOHYDRATES\POTASSIUM CHLORIDE\SODIUM CHLORIDE\SODIUM LACTATE
     Indication: Product used for unknown indication
     Dosage: 500 MILLILITER
     Route: 041
     Dates: start: 20210110, end: 20210110
  80. ELTROMBOPAG OLAMINE [Concomitant]
     Active Substance: ELTROMBOPAG OLAMINE
     Indication: Aplastic anaemia
     Dosage: UNK
     Route: 048
  81. LANSOPRAZOLE [Concomitant]
     Active Substance: LANSOPRAZOLE
     Indication: Product used for unknown indication
     Dosage: UNK
     Route: 048
  82. LIDOCAINE\TRIBENOSIDE [Concomitant]
     Active Substance: LIDOCAINE\TRIBENOSIDE
     Indication: Haemorrhoids
     Dosage: UNK
     Route: 061
  83. TAMIFLU [Concomitant]
     Active Substance: OSELTAMIVIR PHOSPHATE
     Indication: Influenza
     Dosage: UNK
     Route: 048

REACTIONS (7)
  - Platelet count decreased [Not Recovered/Not Resolved]
  - Cerebral haemorrhage [Fatal]
  - Cerebral ventricular rupture [Fatal]
  - White blood cell count decreased [Not Recovered/Not Resolved]
  - Loss of consciousness [Not Recovered/Not Resolved]
  - Off label use [Unknown]
  - Influenza [Recovered/Resolved]

NARRATIVE: CASE EVENT DATE: 20200103
